FAERS Safety Report 11347286 (Version 1)
Quarter: 2015Q3

REPORT INFORMATION
  Report Type: Spontaneous
  Country: US (occurrence: US)
  Receive Date: 20150803
  Receipt Date: 20150803
  Transmission Date: 20151125
  Serious: No
  Sender: FDA-Public Use
  Company Number: US-ELI_LILLY_AND_COMPANY-US201105004879

PATIENT
  Sex: Female

DRUGS (4)
  1. STRATTERA [Suspect]
     Active Substance: ATOMOXETINE HYDROCHLORIDE
     Dosage: 10 MG, QD
     Dates: start: 201103
  2. STRATTERA [Suspect]
     Active Substance: ATOMOXETINE HYDROCHLORIDE
     Dosage: 18 MG, QD
  3. SYNTHROID [Concomitant]
     Active Substance: LEVOTHYROXINE SODIUM
  4. STRATTERA [Suspect]
     Active Substance: ATOMOXETINE HYDROCHLORIDE
     Indication: ATTENTION DEFICIT/HYPERACTIVITY DISORDER
     Dosage: 10 MG, QD
     Dates: end: 20100703

REACTIONS (11)
  - Vertigo [Unknown]
  - Thyroid function test abnormal [Unknown]
  - Exposure during pregnancy [Unknown]
  - Agitation [Unknown]
  - Impulsive behaviour [Recovered/Resolved]
  - Anxiety [Unknown]
  - Panic attack [Recovered/Resolved]
  - Hypothyroidism [Unknown]
  - Irritability [Unknown]
  - Aggression [Unknown]
  - Hostility [Unknown]
